FAERS Safety Report 5167527-9 (Version None)
Quarter: 2006Q4

REPORT INFORMATION
  Report Type: 
  Country: None (occurrence: None)
  Receive Date: 20060830
  Receipt Date: 20060608
  Transmission Date: 20070319
  Serious: No
  Sender: FDA-Public Use
  Company Number: 226120

PATIENT
  Age: 70 Year
  Sex: Male
  Weight: 107 kg

DRUGS (16)
  1. XOLAIR [Suspect]
     Indication: ASTHMA
     Dosage: 300 MG, 1/MONTH, SUBCUTANEOUS
     Route: 058
     Dates: start: 20040601, end: 20050505
  2. CPAP (RESPIRATORY TREATMENTS AND DEVICES) [Concomitant]
  3. PAXIL [Concomitant]
  4. ALLOPURINOL [Concomitant]
  5. LASIX [Concomitant]
  6. COZAAR [Concomitant]
  7. PRILOSEC [Concomitant]
  8. METOPROLOL TARTRATE [Concomitant]
  9. SYNTHROID [Concomitant]
  10. COLACE (DOCUSATE SODIUM) [Concomitant]
  11. COUMADIN [Concomitant]
  12. POTASSIUM (POTASSIUM NOS) [Concomitant]
  13. NASAREL (FLUNISOLIDE) [Concomitant]
  14. SINGULAIR [Concomitant]
  15. PULMICORT [Concomitant]
  16. ASPIRIN [Concomitant]

REACTIONS (1)
  - GASTROINTESTINAL CARCINOMA [None]
